FAERS Safety Report 5160979-X (Version None)
Quarter: 2006Q4

REPORT INFORMATION
  Report Type: 
  Country: None (occurrence: None)
  Receive Date: 20061130
  Receipt Date: 20060620
  Transmission Date: 20070319
  Serious: No
  Sender: FDA-Public Use
  Company Number: US-BRISTOL-MYERS SQUIBB COMPANY-13418298

PATIENT
  Age: 48 Year
  Sex: Female
  Weight: 73 kg

DRUGS (3)
  1. IRBESARTAN + HYDROCHLOROTHIAZIDE [Suspect]
     Route: 048
     Dates: start: 20060401, end: 20060606
  2. PROGESTERONE [Concomitant]
  3. DHEA [Concomitant]

REACTIONS (5)
  - DIZZINESS [None]
  - GOUT [None]
  - PRURITUS [None]
  - RASH [None]
  - URTICARIA [None]
